FAERS Safety Report 8493274-1 (Version None)
Quarter: 2012Q3

REPORT INFORMATION
  Report Type: 
  Country: None (occurrence: None)
  Receive Date: 20120706
  Receipt Date: 20120629
  Transmission Date: 20120928
  Serious: Yes (Hospitalization)
  Sender: FDA-Public Use
  Company Number: FR-ABBOTT-12P-056-0947563-00

PATIENT
  Sex: Female

DRUGS (3)
  1. PREDNISOLONE [Concomitant]
     Indication: CROHN'S DISEASE
     Dosage: 30 MG PER DAY
     Route: 048
  2. HUMIRA [Suspect]
     Indication: CROHN'S DISEASE
     Route: 058
     Dates: start: 20120423, end: 20120423
  3. HUMIRA [Suspect]
     Dosage: HUMIRA SYRINGE
     Dates: start: 20120507

REACTIONS (5)
  - RASH [None]
  - CHILLS [None]
  - INJECTION SITE RASH [None]
  - PYREXIA [None]
  - LEUKOCYTOSIS [None]
